FAERS Safety Report 12550833 (Version 1)
Quarter: 2016Q3

REPORT INFORMATION
  Report Type: Spontaneous
  Country: AU (occurrence: AU)
  Receive Date: 20160712
  Receipt Date: 20160712
  Transmission Date: 20161109
  Serious: Yes (Other)
  Sender: FDA-Public Use
  Company Number: AU-APOTEX-2016AP009686

PATIENT
  Age: 26 Year
  Sex: Female

DRUGS (6)
  1. LITHIUM. [Concomitant]
     Active Substance: LITHIUM
     Indication: PSYCHOTHERAPY
     Dosage: 900 MG,DAILY
     Route: 065
  2. ASENAPINE [Concomitant]
     Active Substance: ASENAPINE
     Indication: PSYCHOTHERAPY
     Dosage: 10 MG, Q.H.S.
     Route: 065
  3. SERTRALINE [Suspect]
     Active Substance: SERTRALINE HYDROCHLORIDE
     Dosage: UNK UNK, UNKNOWN
     Route: 065
  4. LAMOTRIGINE. [Concomitant]
     Active Substance: LAMOTRIGINE
     Indication: PSYCHOTHERAPY
     Dosage: 100 MG, DAILY
     Route: 065
  5. AGOMELATINE [Concomitant]
     Active Substance: AGOMELATINE
     Indication: PSYCHOTHERAPY
     Dosage: 50 MG, Q.H.S.
     Route: 065
  6. SERTRALINE [Suspect]
     Active Substance: SERTRALINE HYDROCHLORIDE
     Indication: DEPRESSION
     Dosage: 200 MG DAILY (GRADUALLY UP-TITRATED)
     Route: 065

REACTIONS (3)
  - Self-injurious ideation [Recovered/Resolved with Sequelae]
  - Bipolar I disorder [Recovered/Resolved with Sequelae]
  - Agitation [Recovered/Resolved with Sequelae]
